FAERS Safety Report 20137323 (Version 1)
Quarter: 2021Q4

REPORT INFORMATION
  Report Type: Spontaneous
  Country: AR (occurrence: AR)
  Receive Date: 20211201
  Receipt Date: 20211201
  Transmission Date: 20220303
  Serious: Yes (Other)
  Sender: FDA-Public Use
  Company Number: AR-PFIZER INC-202101638570

PATIENT
  Age: 72 Year
  Sex: Male

DRUGS (1)
  1. VYNDAQEL [Suspect]
     Active Substance: TAFAMIDIS MEGLUMINE
     Indication: Hereditary neuropathic amyloidosis
     Dosage: 20 MG, DAILY
     Dates: start: 20181025

REACTIONS (3)
  - Gait inability [Not Recovered/Not Resolved]
  - Disease progression [Not Recovered/Not Resolved]
  - Hereditary neuropathic amyloidosis [Not Recovered/Not Resolved]
